FAERS Safety Report 4864510-5 (Version None)
Quarter: 2005Q4

REPORT INFORMATION
  Report Type: 
  Country: None (occurrence: None)
  Receive Date: 20051222
  Receipt Date: 20051216
  Transmission Date: 20060501
  Serious: Yes (Hospitalization)
  Sender: FDA-Public Use
  Company Number: IT-ROCHE-428905

PATIENT
  Age: 16 Year
  Sex: Male

DRUGS (2)
  1. ROCEPHIN [Suspect]
     Indication: PHARYNGITIS
     Route: 030
     Dates: start: 20051128, end: 20051128
  2. VELAMOX [Suspect]
     Indication: PHARYNGITIS
     Route: 048
     Dates: start: 20051121, end: 20051127

REACTIONS (4)
  - ERYTHEMA MULTIFORME [None]
  - PRURITUS [None]
  - RASH ERYTHEMATOUS [None]
  - URTICARIA [None]
